FAERS Safety Report 8105957-3 (Version None)
Quarter: 2012Q1

REPORT INFORMATION
  Report Type: 
  Country: None (occurrence: None)
  Receive Date: 20120202
  Receipt Date: 20120125
  Transmission Date: 20120608
  Serious: No
  Sender: FDA-Public Use
  Company Number: US-BIOGENIDEC-2012BI003180

PATIENT
  Age: 40 Year
  Sex: Female

DRUGS (4)
  1. TYSABRI [Suspect]
     Indication: MULTIPLE SCLEROSIS
     Route: 042
     Dates: start: 20111229
  2. VITAMIN D [Concomitant]
     Indication: MULTIPLE SCLEROSIS
  3. ACID REDUCER [Concomitant]
     Indication: DYSPEPSIA
  4. IBUPROFEN [Concomitant]
     Indication: OPTIC NEURITIS

REACTIONS (3)
  - EYE INFLAMMATION [None]
  - ANXIETY [None]
  - OPTIC NEURITIS [None]
